FAERS Safety Report 6844948-7 (Version None)
Quarter: 2010Q3

REPORT INFORMATION
  Report Type: 
  Country: None (occurrence: None)
  Receive Date: 20100715
  Receipt Date: 20100708
  Transmission Date: 20110219
  Serious: Yes (Other)
  Sender: FDA-Public Use
  Company Number: FR-B.I. PHARMACEUTICALS,INC./RIDGEFIELD-2010-FF-00577FF

PATIENT
  Age: 63 Year
  Sex: Male

DRUGS (1)
  1. MICARDIS HCT [Suspect]
     Route: 048

REACTIONS (1)
  - OSTEONECROSIS [None]
